FAERS Safety Report 16376725 (Version 1)
Quarter: 2019Q2

REPORT INFORMATION
  Report Type: Spontaneous
  Country: US (occurrence: US)
  Receive Date: 20190531
  Receipt Date: 20190531
  Transmission Date: 20190711
  Serious: Yes (Other)
  Sender: FDA-Public Use
  Company Number: US-GLENMARK PHARMACEUTICALS-2019GMK041432

PATIENT

DRUGS (1)
  1. TELMISARTAN. [Suspect]
     Active Substance: TELMISARTAN
     Indication: HYPERTENSION
     Dosage: UNK, OD
     Route: 048
     Dates: start: 2018

REACTIONS (8)
  - Nasopharyngitis [Unknown]
  - Product dispensing error [Unknown]
  - Intercepted product dispensing error [Unknown]
  - Weight decreased [Unknown]
  - Cough [Unknown]
  - Pneumonia [Unknown]
  - Underweight [Unknown]
  - Treatment noncompliance [Unknown]
